FAERS Safety Report 17065368 (Version 1)
Quarter: 2019Q4

REPORT INFORMATION
  Report Type: Spontaneous
  Country: US (occurrence: US)
  Receive Date: 20191122
  Receipt Date: 20191122
  Transmission Date: 20200122
  Serious: No
  Sender: FDA-Public Use
  Company Number: US-BRACCO-2019US03733

PATIENT

DRUGS (1)
  1. LUMASON [Suspect]
     Active Substance: SULFUR HEXAFLUORIDE
     Indication: STRESS ECHOCARDIOGRAM
     Dosage: UNK, SINGLE
     Dates: start: 20190709, end: 20190709

REACTIONS (2)
  - No adverse event [Recovered/Resolved]
  - Therapeutic product effect decreased [Recovered/Resolved]

NARRATIVE: CASE EVENT DATE: 20190709
